FAERS Safety Report 15990410 (Version 1)
Quarter: 2019Q1

REPORT INFORMATION
  Report Type: Spontaneous
  Country: US (occurrence: US)
  Receive Date: 20190221
  Receipt Date: 20190221
  Transmission Date: 20190418
  Serious: Yes (Other)
  Sender: FDA-Public Use
  Company Number: US-BRISTOL-MYERS SQUIBB COMPANY-BMS-2019-017710

PATIENT
  Age: 71 Year
  Sex: Female

DRUGS (2)
  1. NIVOLUMAB [Suspect]
     Active Substance: NIVOLUMAB
     Indication: UVEAL MELANOMA
     Dosage: 1 MG/KG, UNK
     Route: 065
  2. IPILIMUMAB [Suspect]
     Active Substance: IPILIMUMAB
     Indication: UVEAL MELANOMA
     Dosage: 3 MG/KG, UNK
     Route: 065

REACTIONS (6)
  - Rash [Unknown]
  - Malignant neoplasm progression [Unknown]
  - Colitis [Unknown]
  - Iridocyclitis [Recovered/Resolved]
  - Hypopituitarism [Unknown]
  - Keratic precipitates [Recovered/Resolved]
